FAERS Safety Report 18129857 (Version 1)
Quarter: 2020Q3

REPORT INFORMATION
  Report Type: Spontaneous
  Country: US (occurrence: US)
  Receive Date: 20200810
  Receipt Date: 20200810
  Transmission Date: 20201103
  Serious: No
  Sender: FDA-Public Use
  Company Number: US-PERRIGO-20US003394

PATIENT
  Age: 66 Year
  Sex: Female
  Weight: 61.68 kg

DRUGS (4)
  1. MULTIVITAMINS                      /07504101/ [Concomitant]
     Active Substance: VITAMINS
     Dosage: UNK
  2. ASPIRIN 81 [Concomitant]
     Active Substance: ASPIRIN
  3. LORATADINE. [Suspect]
     Active Substance: LORATADINE
     Indication: SMOKE SENSITIVITY
     Dosage: 10 MG, SINGLE
     Route: 048
     Dates: start: 20200227, end: 20200227
  4. VITAMIN D3 [Concomitant]
     Active Substance: CHOLECALCIFEROL
     Dosage: UNK

REACTIONS (3)
  - Dizziness [Recovered/Resolved]
  - Headache [Recovered/Resolved]
  - Rhinorrhoea [Recovered/Resolved]

NARRATIVE: CASE EVENT DATE: 20200228
